FAERS Safety Report 6687192-9 (Version None)
Quarter: 2010Q2

REPORT INFORMATION
  Report Type: 
  Country: None (occurrence: None)
  Receive Date: 20100419
  Receipt Date: 20100407
  Transmission Date: 20101027
  Serious: Yes (Other)
  Sender: FDA-Public Use
  Company Number: DE-PFIZER INC-2010031567

PATIENT
  Age: 37 Year
  Sex: Female

DRUGS (8)
  1. LYRICA [Suspect]
     Indication: TRIGEMINAL NEURALGIA
     Dosage: 25 MG, 2X/DAY
     Route: 048
     Dates: start: 20100101, end: 20100310
  2. GABAPENTIN [Concomitant]
     Dosage: 300 MG, 3X/DAY
     Dates: start: 20091201
  3. NEURONTIN [Concomitant]
     Dosage: UNK
  4. METHOTREXATE [Concomitant]
     Dosage: UNK
  5. HUMIRA [Concomitant]
     Dosage: UNK
  6. TRIAMHEXAL [Concomitant]
     Dosage: UNK
  7. BECLOMETASONE [Concomitant]
     Route: 045
  8. CLARITHROMYCIN [Concomitant]

REACTIONS (12)
  - CARDIOVASCULAR INSUFFICIENCY [None]
  - CRYING [None]
  - DRUG TOXICITY [None]
  - ERYTHEMA [None]
  - FATIGUE [None]
  - GAIT DISTURBANCE [None]
  - HEADACHE [None]
  - SLEEP DISORDER [None]
  - TREMOR [None]
  - VISION BLURRED [None]
  - VISUAL IMPAIRMENT [None]
  - WITHDRAWAL SYNDROME [None]
